FAERS Safety Report 6651411-5 (Version None)
Quarter: 2010Q1

REPORT INFORMATION
  Report Type: 
  Country: None (occurrence: None)
  Receive Date: 20100325
  Receipt Date: 20100312
  Transmission Date: 20100710
  Serious: Yes (Hospitalization)
  Sender: FDA-Public Use
  Company Number: US-ELI_LILLY_AND_COMPANY-US201002003077

PATIENT
  Age: 65 Year
  Sex: Male

DRUGS (3)
  1. ZYPREXA [Suspect]
     Indication: SCHIZOPHRENIA
     Dosage: 10 MG, UNK
  2. SEROQUEL [Concomitant]
     Indication: SCHIZOPHRENIA
     Dosage: 400 MG, UNK
  3. SEROQUEL [Concomitant]
     Dosage: 600 MG, UNK

REACTIONS (1)
  - HYPOTHERMIA [None]
